FAERS Safety Report 9519186 (Version 2)
Quarter: 2013Q3

REPORT INFORMATION
  Report Type: Report from Study
  Country: US (occurrence: US)
  Receive Date: 20130912
  Receipt Date: 20130917
  Transmission Date: 20140515
  Serious: Yes (Hospitalization)
  Sender: FDA-Public Use
  Company Number: US-JNJFOC-20130902652

PATIENT
  Age: 17 Year
  Sex: Male
  Weight: 65.4 kg

DRUGS (2)
  1. REMICADE [Suspect]
     Indication: CROHN^S DISEASE
     Route: 042
     Dates: start: 20111005, end: 20111021
  2. 5-ASA [Concomitant]
     Route: 054

REACTIONS (2)
  - Abscess oral [Recovered/Resolved]
  - Cellulitis [Recovered/Resolved]
